FAERS Safety Report 4598154-X (Version None)
Quarter: 2005Q1

REPORT INFORMATION
  Report Type: 
  Country: None (occurrence: None)
  Receive Date: 20050302
  Receipt Date: 20050223
  Transmission Date: 20050727
  Serious: Yes (Life-Threatening, Hospitalization)
  Sender: FDA-Public Use
  Company Number: 2005SE01122

PATIENT
  Age: 74 Year
  Sex: Male

DRUGS (6)
  1. ZESTRIL [Suspect]
     Indication: CARDIAC FAILURE
     Dosage: 20 MG QD PO
     Route: 048
     Dates: start: 20050208
  2. BEXTRA [Suspect]
     Indication: PAIN
     Dosage: 40 MG QD PO
     Route: 048
     Dates: end: 20050208
  3. INSULIN [Concomitant]
  4. PERSANTIN [Concomitant]
  5. LOSEC [Concomitant]
  6. CIPROXIN [Concomitant]

REACTIONS (3)
  - BALANCE DISORDER [None]
  - PARESIS [None]
  - RENAL FAILURE [None]
